FAERS Safety Report 19780248 (Version 1)
Quarter: 2021Q3

REPORT INFORMATION
  Report Type: Spontaneous
  Country: JP (occurrence: JP)
  Receive Date: 20210902
  Receipt Date: 20210902
  Transmission Date: 20211014
  Serious: Yes (Hospitalization)
  Sender: FDA-Public Use
  Company Number: JP-PFIZER INC-202101094593

PATIENT
  Age: 5 Decade
  Sex: Female
  Weight: 116 kg

DRUGS (3)
  1. CLINDAMYCIN PHOSPHATE. [Suspect]
     Active Substance: CLINDAMYCIN PHOSPHATE
     Indication: SUBCUTANEOUS ABSCESS
     Dosage: UNK
     Route: 042
  2. VANCOMYCIN HYDROCHLORIDE. [Suspect]
     Active Substance: VANCOMYCIN HYDROCHLORIDE
     Indication: SUBCUTANEOUS ABSCESS
     Dosage: 4 G, DAILY
     Route: 042
     Dates: start: 202107
  3. TAZOPIPE [Suspect]
     Active Substance: PIPERACILLIN SODIUM\TAZOBACTAM SODIUM
     Indication: SUBCUTANEOUS ABSCESS
     Route: 042

REACTIONS (1)
  - Renal impairment [Recovered/Resolved]
